FAERS Safety Report 16640889 (Version 1)
Quarter: 2019Q3

REPORT INFORMATION
  Report Type: Report from Study
  Country: IT (occurrence: IT)
  Receive Date: 20190729
  Receipt Date: 20190729
  Transmission Date: 20191004
  Serious: Yes (Other)
  Sender: FDA-Public Use
  Company Number: IT-ROCHE-2363009

PATIENT
  Age: 50 Year
  Sex: Female

DRUGS (15)
  1. NOZINAN [LEVOMEPROMAZINE] [Concomitant]
     Active Substance: LEVOMEPROMAZINE
     Route: 065
  2. BENERVA [Concomitant]
     Active Substance: THIAMINE HYDROCHLORIDE
     Route: 065
  3. PREGABALIN. [Concomitant]
     Active Substance: PREGABALIN
  4. DIBASE [Concomitant]
     Active Substance: CHOLECALCIFEROL
  5. PRAVASTATIN. [Concomitant]
     Active Substance: PRAVASTATIN
  6. PREZISTA [Concomitant]
     Active Substance: DARUNAVIR ETHANOLATE
  7. NORVIR [Concomitant]
     Active Substance: RITONAVIR
  8. SEACOR [Concomitant]
     Active Substance: OMEGA-3 FATTY ACIDS
     Route: 065
  9. FLURAZEPAM MONOHYDROCHLORIDE [Suspect]
     Active Substance: FLURAZEPAM MONOHYDROCHLORIDE
     Indication: INSOMNIA
     Route: 048
  10. KIVEXA [Concomitant]
     Active Substance: ABACAVIR SULFATE\LAMIVUDINE
  11. ESOMEPRAZOLE SODIUM. [Concomitant]
     Active Substance: ESOMEPRAZOLE SODIUM
  12. RIVOTRIL [Suspect]
     Active Substance: CLONAZEPAM
     Indication: INSOMNIA
     Route: 048
  13. RISPERIDONE. [Concomitant]
     Active Substance: RISPERIDONE
  14. CARDIOASPIRIN [Concomitant]
     Active Substance: ASPIRIN
     Route: 065
  15. FOLINA [FOLIC ACID] [Concomitant]
     Active Substance: FOLIC ACID
     Route: 065

REACTIONS (2)
  - Hypokinesia [Recovered/Resolved]
  - Depressed level of consciousness [Recovered/Resolved]

NARRATIVE: CASE EVENT DATE: 20190703
